FAERS Safety Report 9320829 (Version 1)
Quarter: 2013Q2

REPORT INFORMATION
  Report Type: Report from Study
  Country: PL (occurrence: PL)
  Receive Date: 20130531
  Receipt Date: 20130531
  Transmission Date: 20140414
  Serious: Yes (Hospitalization)
  Sender: FDA-Public Use
  Company Number: PL-BIOGENIDEC-2011BI039885

PATIENT
  Age: 49 Year
  Sex: Female
  Weight: 53 kg

DRUGS (4)
  1. BG00012 [Suspect]
     Indication: MULTIPLE SCLEROSIS
     Dates: start: 20110520
  2. GINJAL [Concomitant]
     Indication: CYSTITIS NONINFECTIVE
     Route: 048
     Dates: start: 20091012
  3. VESICARE [Concomitant]
     Indication: URINARY RETENTION
     Route: 048
     Dates: start: 20100421
  4. ZOLPIDEM [Concomitant]
     Indication: INSOMNIA
     Route: 048
     Dates: start: 20110201

REACTIONS (1)
  - Urinary tract infection [Recovered/Resolved]
